FAERS Safety Report 13698840 (Version 2)
Quarter: 2017Q3

REPORT INFORMATION
  Report Type: Spontaneous
  Country: US (occurrence: US)
  Receive Date: 20170628
  Receipt Date: 20170714
  Transmission Date: 20171127
  Serious: No
  Sender: FDA-Public Use
  Company Number: US-PFIZER INC-2016478814

PATIENT
  Age: 47 Year
  Sex: Female
  Weight: 89.81 kg

DRUGS (7)
  1. LINZESS [Concomitant]
     Active Substance: LINACLOTIDE
     Indication: BOWEL MOVEMENT IRREGULARITY
     Dosage: 45 MG, AS NEEDED, (PRESCRIBED ONCE A DAY, TAKES AS NEEDED)
  2. HYDROCODONE BITARTRATE W/PARACETAMOL [Concomitant]
     Active Substance: ACETAMINOPHEN\HYDROCODONE BITARTRATE
     Indication: ARTHRITIS
     Dosage: 325/10 MG TABLET AS NEEDED, [HYDROCODONE BITARTRATE 10MG] / [PARACETAMOL 325 MG]
     Route: 048
     Dates: start: 2013
  3. ZOLPIDEM [Concomitant]
     Active Substance: ZOLPIDEM\ZOLPIDEM TARTRATE
     Indication: SLEEP DISORDER
     Dosage: 10 MG, 1X/DAY, (ONCE AT NIGHT)
     Route: 048
  4. PRISTIQ EXTENDED-RELEASE [Suspect]
     Active Substance: DESVENLAFAXINE SUCCINATE
     Dosage: 100 MG, UNK
     Route: 048
  5. PRISTIQ EXTENDED-RELEASE [Suspect]
     Active Substance: DESVENLAFAXINE SUCCINATE
     Dosage: 50 MG 1X/DAY
     Route: 048
     Dates: end: 2017
  6. PRISTIQ EXTENDED-RELEASE [Suspect]
     Active Substance: DESVENLAFAXINE SUCCINATE
     Indication: DEPRESSION
     Dosage: 50 MG, 1X/DAY
     Route: 048
     Dates: start: 201608
  7. ENALAPRIL+HCTZ [Concomitant]
     Active Substance: ENALAPRIL\HYDROCHLOROTHIAZIDE
     Indication: BLOOD PRESSURE ABNORMAL
     Dosage: 10/25 MG TABLET AS NEEDED, [ENALAPRIL MALEATE 10 MG]/[HYDROCHLOROTHIAZIDE 25 MG]

REACTIONS (13)
  - Crying [Unknown]
  - Irritability [Not Recovered/Not Resolved]
  - Weight increased [Not Recovered/Not Resolved]
  - Condition aggravated [Unknown]
  - Emotional disorder [Unknown]
  - Drug dose omission [Not Recovered/Not Resolved]
  - Mood swings [Unknown]
  - Fatigue [Unknown]
  - Eating disorder [Unknown]
  - Anxiety [Unknown]
  - Apathy [Not Recovered/Not Resolved]
  - Insomnia [Unknown]
  - Aggression [Unknown]

NARRATIVE: CASE EVENT DATE: 2017
